FAERS Safety Report 6820783-0 (Version None)
Quarter: 2010Q3

REPORT INFORMATION
  Report Type: 
  Country: None (occurrence: None)
  Receive Date: 20100707
  Receipt Date: 20070515
  Transmission Date: 20110219
  Serious: No
  Sender: FDA-Public Use
  Company Number: US-PFIZER INC-2007039929

PATIENT
  Sex: Female

DRUGS (2)
  1. ZOLOFT [Suspect]
  2. METHYLPHENIDATE [Suspect]
     Indication: ATTENTION DEFICIT/HYPERACTIVITY DISORDER
     Route: 062

REACTIONS (4)
  - APPLICATION SITE ERYTHEMA [None]
  - CARDIAC DISORDER [None]
  - PALPITATIONS [None]
  - TACHYCARDIA [None]
